FAERS Safety Report 8185544-1 (Version None)
Quarter: 2012Q1

REPORT INFORMATION
  Report Type: 
  Country: None (occurrence: None)
  Receive Date: 20120305
  Receipt Date: 20120222
  Transmission Date: 20120608
  Serious: Yes (Other)
  Sender: FDA-Public Use
  Company Number: US-ELI_LILLY_AND_COMPANY-US201202003132

PATIENT
  Sex: Female

DRUGS (2)
  1. HUMALOG [Suspect]
     Indication: TYPE 2 DIABETES MELLITUS
     Dosage: 15 U, BID
  2. LANTUS [Concomitant]
     Indication: TYPE 2 DIABETES MELLITUS
     Dosage: 30 U, EACH EVENING
     Route: 058
     Dates: start: 20100101

REACTIONS (10)
  - BLOOD GLUCOSE INCREASED [None]
  - MEMORY IMPAIRMENT [None]
  - BLOOD GLUCOSE DECREASED [None]
  - MALAISE [None]
  - INCORRECT PRODUCT STORAGE [None]
  - DRUG DOSE OMISSION [None]
  - DIZZINESS [None]
  - BLOOD GLUCOSE ABNORMAL [None]
  - NAUSEA [None]
  - CONFUSIONAL STATE [None]
